FAERS Safety Report 8565010-1 (Version None)
Quarter: 2012Q3

REPORT INFORMATION
  Report Type: 
  Country: None (occurrence: None)
  Receive Date: 20120803
  Receipt Date: 20120730
  Transmission Date: 20120928
  Serious: No
  Sender: FDA-Public Use
  Company Number: US-PFIZER INC-2012184587

PATIENT
  Sex: Male

DRUGS (2)
  1. AZITHROMYCIN [Suspect]
     Dosage: 250 MG, 1X/DAY
     Route: 048
     Dates: start: 20120701, end: 20120701
  2. AZITHROMYCIN [Suspect]
     Dosage: 250 MG, 2X/DAY
     Route: 048
     Dates: start: 20120717, end: 20120701

REACTIONS (1)
  - RASH [None]
